FAERS Safety Report 7863987-0 (Version None)
Quarter: 2011Q4

REPORT INFORMATION
  Report Type: 
  Country: None (occurrence: None)
  Receive Date: 20111028
  Receipt Date: 20111021
  Transmission Date: 20120403
  Serious: No
  Sender: FDA-Public Use
  Company Number: US-BIOGENIDEC-2011BI040395

PATIENT
  Sex: Female

DRUGS (2)
  1. TYSABRI [Suspect]
     Indication: MULTIPLE SCLEROSIS
     Route: 042
     Dates: start: 20110727
  2. TYSABRI [Suspect]
     Route: 042
     Dates: start: 20070124, end: 20070221

REACTIONS (2)
  - OSTEOPOROSIS [None]
  - HYPERSENSITIVITY [None]
